FAERS Safety Report 7014902-3 (Version None)
Quarter: 2010Q3

REPORT INFORMATION
  Report Type: 
  Country: None (occurrence: None)
  Receive Date: 20100927
  Receipt Date: 20100215
  Transmission Date: 20110219
  Serious: No
  Sender: FDA-Public Use
  Company Number: US-ASTRAZENECA-2010SE06591

PATIENT
  Age: 57 Year
  Sex: Female
  Weight: 56.2 kg

DRUGS (2)
  1. ARIMIDEX [Suspect]
     Indication: BREAST CANCER
     Route: 048
     Dates: start: 20091001, end: 20100213
  2. CALCIUM [Concomitant]

REACTIONS (4)
  - ANGER [None]
  - ARTHRALGIA [None]
  - HOT FLUSH [None]
  - WEIGHT INCREASED [None]
